FAERS Safety Report 8145279-8 (Version None)
Quarter: 2012Q1

REPORT INFORMATION
  Report Type: 
  Country: None (occurrence: None)
  Receive Date: 20120217
  Receipt Date: 20120209
  Transmission Date: 20120608
  Serious: Yes (Hospitalization)
  Sender: FDA-Public Use
  Company Number: PHHY2011JP111130

PATIENT
  Age: 69 Year
  Sex: Male

DRUGS (6)
  1. CEFOPERAZONE SODIUM/SULBACTAM SODIUM [Suspect]
     Dates: start: 20120102
  2. FAMOTIDINE [Suspect]
     Dosage: 10 MG, UNK
     Route: 048
     Dates: end: 20111219
  3. NORVASC [Suspect]
     Dosage: 10 MG, UNK
     Route: 048
     Dates: end: 20111219
  4. DIOVAN [Suspect]
     Indication: HYPERTENSION
     Dosage: 160 MG, DAILY
     Route: 048
     Dates: start: 20111206, end: 20111219
  5. DIOVAN [Suspect]
     Indication: AORTIC DISSECTION
  6. CEFOPERAZONE SODIUM/SULBACTAM SODIUM [Suspect]
     Dates: end: 20111219

REACTIONS (2)
  - CHOLECYSTITIS [None]
  - PLATELET COUNT DECREASED [None]
